FAERS Safety Report 5052634-1 (Version None)
Quarter: 2006Q3

REPORT INFORMATION
  Report Type: 
  Country: None (occurrence: None)
  Receive Date: 20060711
  Receipt Date: 20060704
  Transmission Date: 20061208
  Serious: Yes (Hospitalization)
  Sender: FDA-Public Use
  Company Number: 200612822GDS

PATIENT
  Age: 60 Year
  Sex: Male

DRUGS (9)
  1. CIPROFLOXACIN [Suspect]
     Indication: PYREXIA
     Dosage: 500 MG, TOTAL DAILY, ORAL; 250 MG, TOTAL DAILY, ORAL
     Route: 048
     Dates: start: 20060529, end: 20060603
  2. CIPROFLOXACIN [Suspect]
     Indication: PYREXIA
     Dosage: 500 MG, TOTAL DAILY, ORAL; 250 MG, TOTAL DAILY, ORAL
     Route: 048
     Dates: start: 20060628
  3. PARACETAMOLUM [Concomitant]
  4. ALLOPURINOL [Concomitant]
  5. MAALOX [ALUMINIUM HYDROXIDE, MAGNESIUM HYDROXIDE] [Concomitant]
  6. ROCEPHIN [Concomitant]
  7. NORVASC [Concomitant]
  8. ROCALTROL [Concomitant]
  9. TAVOR [LORAZEPAM] [Concomitant]

REACTIONS (3)
  - MOUTH HAEMORRHAGE [None]
  - RASH MORBILLIFORM [None]
  - STOMATITIS [None]
